FAERS Safety Report 10903867 (Version 1)
Quarter: 2015Q1

REPORT INFORMATION
  Report Type: Report from Study
  Country: IN (occurrence: IN)
  Receive Date: 20150311
  Receipt Date: 20150311
  Transmission Date: 20150721
  Serious: Yes (Other)
  Sender: FDA-Public Use
  Company Number: IN-ROCHE-1548177

PATIENT

DRUGS (3)
  1. QURSE-E-ISTISQUA [Suspect]
     Active Substance: HERBALS
     Indication: HEPATITIS C
     Route: 048
  2. RIBAVIRIN. [Suspect]
     Active Substance: RIBAVIRIN
     Indication: HEPATITIS C
     Route: 048
  3. INTERFERON ALFA-2A [Suspect]
     Active Substance: INTERFERON ALFA-2A
     Indication: HEPATITIS C
     Route: 058

REACTIONS (6)
  - Depression [Unknown]
  - Visual acuity reduced [Unknown]
  - Suicidal ideation [Unknown]
  - Hypothyroidism [Unknown]
  - Pericardial effusion [Unknown]
  - Anaemia [Unknown]
